FAERS Safety Report 23731896 (Version 1)
Quarter: 2024Q2

REPORT INFORMATION
  Report Type: Other
  Country: CA (occurrence: CA)
  Receive Date: 20240411
  Receipt Date: 20240411
  Transmission Date: 20240716
  Serious: Yes (Other)
  Sender: FDA-Public Use
  Company Number: CA-PFIZER INC-202400081892

PATIENT
  Age: 52 Year
  Sex: Male

DRUGS (22)
  1. OXALIPLATIN [Suspect]
     Active Substance: OXALIPLATIN
     Indication: Pancreatic carcinoma metastatic
     Route: 065
  2. GEMCITABINE HYDROCHLORIDE [Suspect]
     Active Substance: GEMCITABINE HYDROCHLORIDE
     Indication: Pancreatic carcinoma metastatic
     Route: 065
  3. LORBRENA [Suspect]
     Active Substance: LORLATINIB
     Indication: Pancreatic carcinoma metastatic
     Route: 065
  4. TRASTUZUMAB [Suspect]
     Active Substance: TRASTUZUMAB
     Indication: Pancreatic carcinoma metastatic
     Route: 065
  5. CAPECITABINE [Suspect]
     Active Substance: CAPECITABINE
     Indication: Pancreatic carcinoma metastatic
     Route: 065
  6. ENTRECTINIB [Suspect]
     Active Substance: ENTRECTINIB
     Indication: Pancreatic carcinoma metastatic
     Route: 065
  7. PEMBROLIZUMAB [Suspect]
     Active Substance: PEMBROLIZUMAB
     Indication: Pancreatic carcinoma metastatic
     Route: 065
  8. PEMETREXED [Suspect]
     Active Substance: PEMETREXED
     Indication: Pancreatic carcinoma metastatic
     Route: 065
  9. ALUNBRIG [Concomitant]
     Active Substance: BRIGATINIB
  10. AMILOMER [Concomitant]
     Active Substance: AMILOMER
  11. BEVACIZUMAB [Concomitant]
     Active Substance: BEVACIZUMAB
     Route: 065
  12. CISPLATIN [Concomitant]
     Active Substance: CISPLATIN
     Route: 042
  13. DEMCIZUMAB [Concomitant]
     Active Substance: DEMCIZUMAB
  14. ETHIODIZED OIL [Concomitant]
     Active Substance: ETHIODIZED OIL
  15. FLUOROURACIL SODIUM [Concomitant]
     Active Substance: FLUOROURACIL SODIUM
  16. LEUCOVORIN [Concomitant]
     Active Substance: LEUCOVORIN\LEUCOVORIN CALCIUM
  17. IRINOTECAN [Concomitant]
     Active Substance: IRINOTECAN
  18. MITOMYCIN [Concomitant]
     Active Substance: MITOMYCIN
  19. OSIMERTINIB [Concomitant]
     Active Substance: OSIMERTINIB
  20. PACLITAXEL [Concomitant]
     Active Substance: PACLITAXEL
  21. PERTUZUMAB [Concomitant]
     Active Substance: PERTUZUMAB
     Route: 065
  22. TRASTUZUMAB DERUXTECAN [Concomitant]
     Active Substance: TRASTUZUMAB DERUXTECAN

REACTIONS (2)
  - Pancytopenia [Unknown]
  - Off label use [Unknown]
